FAERS Safety Report 21859934 (Version 1)
Quarter: 2023Q1

REPORT INFORMATION
  Report Type: Spontaneous
  Country: US (occurrence: None)
  Receive Date: 20230112
  Receipt Date: 20230112
  Transmission Date: 20230418
  Serious: Yes (Disabling)
  Sender: FDA-Public Use
  Company Number: None

PATIENT
  Age: 35 Year
  Sex: Female
  Weight: 53.52 kg

DRUGS (4)
  1. PARAGARD T 380A [Suspect]
     Active Substance: COPPER
     Dates: start: 20220523, end: 20230111
  2. BOTOX [Concomitant]
     Active Substance: ONABOTULINUMTOXINA
  3. Ropivocaine occipital nerve shots [Concomitant]
  4. AJOVY [Concomitant]
     Active Substance: FREMANEZUMAB-VFRM

REACTIONS (5)
  - Heavy menstrual bleeding [None]
  - Nausea [None]
  - Vomiting [None]
  - Serum ferritin decreased [None]
  - Product complaint [None]

NARRATIVE: CASE EVENT DATE: 20230111
